FAERS Safety Report 10183948 (Version 1)
Quarter: 2014Q2

REPORT INFORMATION
  Report Type: Spontaneous
  Country: IN (occurrence: IN)
  Receive Date: 20140520
  Receipt Date: 20140520
  Transmission Date: 20141212
  Serious: Yes (Hospitalization)
  Sender: FDA-Public Use
  Company Number: IN-WATSON-2014-10346

PATIENT
  Age: 7 Year
  Sex: 0

DRUGS (1)
  1. TACROLIMUS (UNKNOWN) [Suspect]
     Indication: NEPHROTIC SYNDROME
     Dosage: 2 MG, BID
     Route: 065

REACTIONS (6)
  - Renal failure acute [Recovered/Resolved]
  - Hypertension [Recovered/Resolved]
  - Hyperkalaemia [Recovered/Resolved]
  - Tremor [Recovered/Resolved]
  - Immunosuppressant drug level increased [Recovered/Resolved]
  - Toxicity to various agents [Recovered/Resolved]
